FAERS Safety Report 23274740 (Version 1)
Quarter: 2023Q4

REPORT INFORMATION
  Report Type: Spontaneous
  Country: US (occurrence: US)
  Receive Date: 20231208
  Receipt Date: 20231208
  Transmission Date: 20240110
  Serious: No
  Sender: FDA-Public Use
  Company Number: US-AMGEN-USASP2023218523

PATIENT
  Age: 66 Year
  Sex: Female

DRUGS (2)
  1. ARANESP [Suspect]
     Active Substance: DARBEPOETIN ALFA
     Indication: Myelofibrosis
     Dosage: 300 MILLIGRAM, Q4WK
     Route: 065
     Dates: start: 2009
  2. ARANESP [Suspect]
     Active Substance: DARBEPOETIN ALFA
     Dosage: 300 MILLIGRAM, Q2WK
     Route: 058

REACTIONS (3)
  - Dysphonia [Unknown]
  - Blood pressure increased [Recovered/Resolved]
  - Off label use [Unknown]

NARRATIVE: CASE EVENT DATE: 20090101
